FAERS Safety Report 7957700-6 (Version None)
Quarter: 2011Q4

REPORT INFORMATION
  Report Type: 
  Country: None (occurrence: None)
  Receive Date: 20111205
  Receipt Date: 20111130
  Transmission Date: 20120403
  Serious: Yes (Other)
  Sender: FDA-Public Use
  Company Number: PHEH2011US010508

PATIENT
  Sex: Female

DRUGS (2)
  1. ALORA [Suspect]
     Dosage: 0.1 MG, USED ONLY TWICE
     Route: 062
  2. ESTRADERM [Suspect]
     Dosage: 0.1 MG, UNK
     Route: 062

REACTIONS (7)
  - HEADACHE [None]
  - MYOCARDIAL INFARCTION [None]
  - MENTAL DISORDER [None]
  - BALANCE DISORDER [None]
  - DIZZINESS [None]
  - NAUSEA [None]
  - VISUAL IMPAIRMENT [None]
